FAERS Safety Report 9164179 (Version 11)
Quarter: 2014Q1

REPORT INFORMATION
  Report Type: Spontaneous
  Country: US (occurrence: US)
  Receive Date: 20130315
  Receipt Date: 20140310
  Transmission Date: 20141002
  Serious: Yes (Hospitalization)
  Sender: FDA-Public Use
  Company Number: US-BIOGENIDEC-2013BI022549

PATIENT
  Age: 51 Year
  Sex: Male

DRUGS (17)
  1. TYSABRI [Suspect]
     Indication: MULTIPLE SCLEROSIS
     Route: 042
     Dates: start: 20120216, end: 20130913
  2. AMPYRA [Concomitant]
     Route: 048
  3. VANCOMYCIN [Concomitant]
     Route: 048
  4. OXYCODONE [Concomitant]
     Route: 048
  5. AMBIEN [Concomitant]
     Route: 048
  6. ACIDOPHILUS [Concomitant]
     Route: 048
  7. GRALISE [Concomitant]
     Route: 048
  8. VITAMIN D3 [Concomitant]
     Route: 048
  9. CARBAMAZEPINE [Concomitant]
     Route: 048
  10. FIORICET [Concomitant]
     Route: 048
  11. VITAMIN B 12 [Concomitant]
     Route: 030
  12. METOPROLOL [Concomitant]
     Indication: HYPERTENSION
     Route: 048
  13. LISINOPRIL [Concomitant]
     Indication: HYPERTENSION
     Route: 048
  14. ASPIRIN [Concomitant]
     Route: 048
  15. CYMBALTA [Concomitant]
     Route: 048
  16. IRON [Concomitant]
     Route: 048
  17. MARIJUANA [Concomitant]

REACTIONS (10)
  - Vitello-intestinal duct remnant [Recovered/Resolved]
  - Multiple sclerosis relapse [Recovered/Resolved]
  - Weight decreased [Recovered/Resolved]
  - Clostridium difficile infection [Recovered/Resolved]
  - Ileus [Recovered/Resolved]
  - Abdominal pain upper [Recovered/Resolved]
  - Abdominal distension [Recovered/Resolved]
  - Paraesthesia [Not Recovered/Not Resolved]
  - Diarrhoea [Not Recovered/Not Resolved]
  - Malaise [Unknown]
